APPROVED DRUG PRODUCT: PHISOHEX
Active Ingredient: HEXACHLOROPHENE
Strength: 3%
Dosage Form/Route: EMULSION;TOPICAL
Application: N008402 | Product #001
Applicant: SANOFI AVENTIS US LLC
Approved: Approved Prior to Jan 1, 1982 | RLD: No | RS: No | Type: DISCN